FAERS Safety Report 5838029-9 (Version None)
Quarter: 2008Q3

REPORT INFORMATION
  Report Type: 
  Country: None (occurrence: None)
  Receive Date: 20080808
  Receipt Date: 20080306
  Transmission Date: 20090109
  Serious: No
  Sender: FDA-Public Use
  Company Number: A0715549A

PATIENT
  Sex: Female

DRUGS (4)
  1. PAXIL [Suspect]
     Indication: DRUG USE FOR UNKNOWN INDICATION
     Dosage: 40MG UNKNOWN
     Route: 048
  2. REQUIP [Suspect]
     Indication: RESTLESS LEGS SYNDROME
     Dosage: 2MG UNKNOWN
     Route: 048
  3. LUNESTA [Suspect]
     Indication: DRUG USE FOR UNKNOWN INDICATION
     Dosage: 3MG AS REQUIRED
     Route: 048
  4. SUBOXONE [Suspect]
     Dosage: .5MG ALTERNATE DAYS
     Route: 048

REACTIONS (2)
  - ADVERSE EVENT [None]
  - DRUG SCREEN FALSE POSITIVE [None]
